FAERS Safety Report 4331887-9 (Version None)
Quarter: 2004Q2

REPORT INFORMATION
  Report Type: 
  Country: None (occurrence: None)
  Receive Date: 20040405
  Receipt Date: 20040218
  Transmission Date: 20050107
  Serious: No
  Sender: FDA-Public Use
  Company Number: US-GLAXOSMITHKLINE-A0498738A

PATIENT
  Age: 88 Year
  Sex: Female

DRUGS (3)
  1. FLOVENT [Suspect]
     Indication: ILL-DEFINED DISORDER
     Dosage: 440MCG TWICE PER DAY
     Route: 055
     Dates: start: 20031201
  2. ATROVENT [Concomitant]
  3. NORVASC [Concomitant]

REACTIONS (1)
  - DIZZINESS [None]
